FAERS Safety Report 21788143 (Version 9)
Quarter: 2023Q2

REPORT INFORMATION
  Report Type: Report from Study
  Country: CA (occurrence: CA)
  Receive Date: 20221228
  Receipt Date: 20230626
  Transmission Date: 20230721
  Serious: Yes (Hospitalization)
  Sender: FDA-Public Use
  Company Number: CA-002147023-NVSC2022CA294540

PATIENT
  Age: 60 Year
  Sex: Female
  Weight: 77.9 kg

DRUGS (13)
  1. SCEMBLIX [Suspect]
     Active Substance: ASCIMINIB HYDROCHLORIDE
     Indication: Chronic myeloid leukaemia
     Dosage: 40 MG, BID
     Route: 048
     Dates: start: 20221101, end: 20221130
  2. POTASSIUM CHLORIDE [Concomitant]
     Active Substance: POTASSIUM CHLORIDE
     Indication: Myalgia
     Dosage: UNK
     Route: 065
     Dates: start: 202212
  3. VITAMINS [Concomitant]
     Active Substance: VITAMINS
     Indication: General physical condition
     Dosage: UNK
     Route: 065
     Dates: start: 2022
  4. ASPIRIN [Concomitant]
     Active Substance: ASPIRIN
     Indication: Pain in extremity
     Dosage: UNK
     Route: 065
     Dates: start: 20221119
  5. ASPIRIN [Concomitant]
     Active Substance: ASPIRIN
     Indication: Headache
  6. IBUPROFEN [Concomitant]
     Active Substance: IBUPROFEN
     Indication: Pain in extremity
     Dosage: UNK
     Route: 065
     Dates: start: 20221119
  7. IBUPROFEN [Concomitant]
     Active Substance: IBUPROFEN
     Indication: Headache
  8. GRANULOCYTE COLONY-STIMULATING FACTOR NOS [Concomitant]
     Active Substance: GRANULOCYTE COLONY-STIMULATING FACTOR NOS
     Indication: Neutropenia
     Dosage: UNK
     Route: 065
     Dates: start: 20221203, end: 20221204
  9. GRANULOCYTE COLONY-STIMULATING FACTOR NOS [Concomitant]
     Active Substance: GRANULOCYTE COLONY-STIMULATING FACTOR NOS
     Dosage: UNK
     Route: 065
     Dates: start: 20221208, end: 20221219
  10. VITAMIN B12 [Concomitant]
     Active Substance: CYANOCOBALAMIN
     Indication: General physical condition
     Dosage: UNK
     Route: 065
  11. OMEGA-3 ACIDS [Concomitant]
     Active Substance: OMEGA-3 FATTY ACIDS
     Indication: General physical condition
     Dosage: UNK
     Route: 065
  12. VITAMIN D3 [Concomitant]
     Active Substance: CHOLECALCIFEROL
     Indication: General physical condition
     Dosage: UNK
     Route: 065
  13. CLOTRIMAZOLE [Concomitant]
     Active Substance: CLOTRIMAZOLE
     Indication: Herpes simplex
     Dosage: UNK
     Route: 065
     Dates: start: 202212, end: 202301

REACTIONS (2)
  - Pneumonia pneumococcal [Recovered/Resolved]
  - Febrile neutropenia [Recovered/Resolved]

NARRATIVE: CASE EVENT DATE: 20221217
